FAERS Safety Report 5795071-4 (Version None)
Quarter: 2008Q2

REPORT INFORMATION
  Report Type: 
  Country: None (occurrence: None)
  Receive Date: 20080630
  Receipt Date: 20080328
  Transmission Date: 20081010
  Serious: No
  Sender: FDA-Public Use
  Company Number: US-BRISTOL-MYERS SQUIBB COMPANY-14129969

PATIENT
  Age: 51 Year
  Sex: Female
  Weight: 67 kg

DRUGS (3)
  1. ORENCIA [Suspect]
     Dates: start: 20080307
  2. PREDNISONE [Concomitant]
  3. SULFASALAZINE [Concomitant]

REACTIONS (2)
  - FATIGUE [None]
  - PAIN [None]
